FAERS Safety Report 17623145 (Version 5)
Quarter: 2020Q4

REPORT INFORMATION
  Report Type: Report from Study
  Country: US (occurrence: US)
  Receive Date: 20200403
  Receipt Date: 20201123
  Transmission Date: 20210113
  Serious: No
  Sender: FDA-Public Use
  Company Number: US-BIOVITRUM-2019US3385

PATIENT
  Sex: Female

DRUGS (2)
  1. KINERET [Suspect]
     Active Substance: ANAKINRA
     Route: 058
     Dates: start: 20200329
  2. KINERET [Suspect]
     Active Substance: ANAKINRA
     Indication: RHEUMATOID ARTHRITIS
     Dates: start: 20190325

REACTIONS (20)
  - Joint range of motion decreased [Unknown]
  - Joint swelling [Unknown]
  - Emotional disorder [Unknown]
  - Malaise [Unknown]
  - Vaginal infection [Unknown]
  - Injection site pain [Unknown]
  - Pain [Unknown]
  - Joint stiffness [Unknown]
  - Abdominal pain [Unknown]
  - Injection site pruritus [Unknown]
  - Condition aggravated [Unknown]
  - Urinary tract infection [Recovered/Resolved]
  - Alopecia [Unknown]
  - Musculoskeletal stiffness [Unknown]
  - Asthenia [Unknown]
  - Influenza [Recovered/Resolved]
  - Back pain [Unknown]
  - Ovarian cyst [Unknown]
  - Injection site induration [Unknown]
  - Product dose omission issue [Recovered/Resolved]
